FAERS Safety Report 13516862 (Version 1)
Quarter: 2017Q2

REPORT INFORMATION
  Report Type: Spontaneous
  Country: US (occurrence: US)
  Receive Date: 20170504
  Receipt Date: 20170504
  Transmission Date: 20170830
  Serious: Yes (Hospitalization)
  Sender: FDA-Public Use
  Company Number: None

PATIENT
  Age: 101 Year
  Sex: Male
  Weight: 49.6 kg

DRUGS (1)
  1. ASPIRIN/DIPYRIDAMOLE [Suspect]
     Active Substance: ASPIRIN\DIPYRIDAMOLE
     Indication: CEREBROVASCULAR ACCIDENT PROPHYLAXIS
     Route: 048
     Dates: start: 20151223, end: 20170213

REACTIONS (5)
  - Haemorrhage [None]
  - Diverticulum intestinal [None]
  - Haematochezia [None]
  - Haemorrhoids [None]
  - Haemoglobin decreased [None]

NARRATIVE: CASE EVENT DATE: 20170210
